FAERS Safety Report 16058945 (Version 2)
Quarter: 2019Q1

REPORT INFORMATION
  Report Type: Spontaneous
  Country: US (occurrence: US)
  Receive Date: 20190311
  Receipt Date: 20190311
  Transmission Date: 20190418
  Serious: Yes (Other)
  Sender: FDA-Public Use
  Company Number: PHHY2019US052476

PATIENT
  Sex: Male

DRUGS (3)
  1. DEXAMETHASONE. [Suspect]
     Active Substance: DEXAMETHASONE
     Indication: HAEMOPHILIA
     Dosage: 6 MG/M2, UNK
     Route: 065
  2. RITUXIMAB. [Suspect]
     Active Substance: RITUXIMAB
     Indication: HAEMOPHILIA
     Dosage: 375 MG/M2 X 4 DOSES
     Route: 065
  3. MYCOPHENOLATE [Suspect]
     Active Substance: MYCOPHENOLIC ACID
     Indication: HAEMOPHILIA
     Dosage: 300 MG/M2, QD
     Route: 065

REACTIONS (4)
  - Hypersensitivity [Unknown]
  - Haemophilia [Unknown]
  - Disease recurrence [Unknown]
  - Product use in unapproved indication [Unknown]
